FAERS Safety Report 7141140-6 (Version None)
Quarter: 2010Q4

REPORT INFORMATION
  Report Type: 
  Country: None (occurrence: None)
  Receive Date: 20101122
  Receipt Date: 20101108
  Transmission Date: 20110411
  Serious: Yes (Hospitalization)
  Sender: FDA-Public Use
  Company Number: DSJ-2010-20257

PATIENT
  Age: 65 Year
  Sex: Female

DRUGS (4)
  1. AMLODIPINE BESYLATE AND OLMESARTAN MEDOXOMIL [Suspect]
     Indication: HYPERTENSION
     Dosage: 40/5 MG (1 IN 1 D), PER ORAL
     Route: 048
     Dates: start: 20090101
  2. INDAPAMIDE [Concomitant]
  3. ATENOLOL [Concomitant]
  4. ALISKIREN [Concomitant]

REACTIONS (1)
  - CHOLECYSTECTOMY [None]
